FAERS Safety Report 8484279-5 (Version None)
Quarter: 2012Q3

REPORT INFORMATION
  Report Type: 
  Country: None (occurrence: None)
  Receive Date: 20120703
  Receipt Date: 20120627
  Transmission Date: 20120928
  Serious: Yes (Death)
  Sender: FDA-Public Use
  Company Number: EC-JNJFOC-20120614204

PATIENT
  Sex: Female

DRUGS (3)
  1. ERLOTINIB HYDROCHLORIDE [Concomitant]
     Route: 065
  2. DOXORUBICIN HCL [Suspect]
     Indication: PRODUCT USED FOR UNKNOWN INDICATION
     Route: 042
  3. BEVACIZUMAB [Concomitant]
     Route: 065

REACTIONS (1)
  - DEATH [None]
